FAERS Safety Report 24063164 (Version 2)
Quarter: 2025Q1

REPORT INFORMATION
  Report Type: Spontaneous
  Country: US (occurrence: US)
  Receive Date: 20240709
  Receipt Date: 20250322
  Transmission Date: 20250408
  Serious: No
  Sender: SANOFI AVENTIS
  Company Number: US-SA-SAC20240705000047

PATIENT
  Age: 58 Year
  Sex: Female

DRUGS (1)
  1. DUPIXENT [Suspect]
     Active Substance: DUPILUMAB
     Indication: Asthma
     Dosage: 300 MG, QOW
     Route: 058

REACTIONS (8)
  - Dyspnoea [Unknown]
  - Condition aggravated [Unknown]
  - Peripheral swelling [Unknown]
  - Paraesthesia [Unknown]
  - Feeling hot [Unknown]
  - Hypoaesthesia [Unknown]
  - Myalgia [Unknown]
  - Injection site pain [Unknown]

NARRATIVE: CASE EVENT DATE: 20240601
